FAERS Safety Report 15688438 (Version 1)
Quarter: 2018Q4

REPORT INFORMATION
  Report Type: Report from Study
  Country: None (occurrence: US)
  Receive Date: 20181205
  Receipt Date: 20181205
  Transmission Date: 20190205
  Serious: Yes (Hospitalization)
  Sender: FDA-Public Use
  Company Number: US-ABBVIE-18K-163-2563784-00

PATIENT
  Sex: Male

DRUGS (2)
  1. VENCLEXTA [Suspect]
     Active Substance: VENETOCLAX
     Route: 065
     Dates: start: 20181129
  2. VENCLEXTA [Suspect]
     Active Substance: VENETOCLAX
     Indication: CHRONIC LYMPHOCYTIC LEUKAEMIA
     Route: 065
     Dates: start: 20180813, end: 2018

REACTIONS (6)
  - Asthenia [Unknown]
  - Complication associated with device [Unknown]
  - Constipation [Unknown]
  - Dyschezia [Unknown]
  - Diarrhoea [Unknown]
  - Faeces hard [Unknown]

NARRATIVE: CASE EVENT DATE: 2018
